FAERS Safety Report 5349008-2 (Version None)
Quarter: 2007Q2

REPORT INFORMATION
  Report Type: 
  Country: None (occurrence: None)
  Receive Date: 20070516
  Receipt Date: 20070412
  Transmission Date: 20071010
  Serious: Yes (Other)
  Sender: FDA-Public Use
  Company Number: 200712596US

PATIENT
  Age: 70 Year
  Sex: Female

DRUGS (12)
  1. APIDRA [Suspect]
     Indication: DIABETES MELLITUS NON-INSULIN-DEPENDENT
     Dosage: 1-5 SLIDING SCALE U AC
     Dates: start: 20060101, end: 20060101
  2. OPTICLIK [Suspect]
     Indication: DIABETES MELLITUS NON-INSULIN-DEPENDENT
     Dates: start: 20060101
  3. LANTUS [Suspect]
     Indication: DIABETES MELLITUS NON-INSULIN-DEPENDENT
     Dosage: 29 U HS
     Dates: start: 20060101
  4. OPTICLIK [Suspect]
     Indication: DIABETES MELLITUS NON-INSULIN-DEPENDENT
     Dates: start: 20060101
  5. INSULIN (HUMALOG /00030501/) [Concomitant]
  6. METFORMIN [Concomitant]
  7. LORATADINE [Concomitant]
  8. PREVACID [Concomitant]
  9. ASCORBIC ACID [Concomitant]
  10. TOCOPHEROL CONCENTRATE CAP [Concomitant]
  11. RETINOL (OCUVITE PIOGLITAZONE /01053801/) [Concomitant]
  12. PIOGLITAZONE [Concomitant]

REACTIONS (5)
  - BLOOD GLUCOSE INCREASED [None]
  - HOT FLUSH [None]
  - HYPERHIDROSIS [None]
  - HYPOGLYCAEMIA [None]
  - WRONG DRUG ADMINISTERED [None]
